FAERS Safety Report 4682967-X (Version None)
Quarter: 2005Q2

REPORT INFORMATION
  Report Type: 
  Country: None (occurrence: None)
  Receive Date: 20050602
  Receipt Date: 20050321
  Transmission Date: 20051028
  Serious: No
  Sender: FDA-Public Use
  Company Number: USA050393760

PATIENT
  Sex: Female

DRUGS (4)
  1. CYMBALTA [Suspect]
     Dates: start: 20050201
  2. AROMASIN [Concomitant]
  3. SYNTHROID [Concomitant]
  4. AMITRIPTYLINE HCL [Concomitant]

REACTIONS (3)
  - ACTIVITIES OF DAILY LIVING IMPAIRED [None]
  - OEDEMA PERIPHERAL [None]
  - SKIN DISORDER [None]
